FAERS Safety Report 14377682 (Version 2)
Quarter: 2018Q4

REPORT INFORMATION
  Report Type: Spontaneous
  Country: US (occurrence: US)
  Receive Date: 20180111
  Receipt Date: 20181009
  Transmission Date: 20190204
  Serious: Yes (Hospitalization)
  Sender: FDA-Public Use
  Company Number: US-TEVA-2018-US-844118

PATIENT
  Age: 42 Year
  Sex: Female

DRUGS (3)
  1. MORPHINE [Suspect]
     Active Substance: MORPHINE
     Dosage: 4.8 MILLIGRAM DAILY; THROUGH INTRATHECAL DRUG DELIVERY DEVICE
     Route: 037
     Dates: start: 1997
  2. MORPHINE [Suspect]
     Active Substance: MORPHINE
     Dosage: 19.2 MILLIGRAM DAILY; THROUGH INTRATHECAL DRUG DELIVERY DEVICE
     Route: 037
     Dates: start: 1997
  3. MORPHINE [Suspect]
     Active Substance: MORPHINE
     Dosage: 21 MILLIGRAM DAILY; THROUGH INTRATHECAL DRUG DELIVERY DEVICE
     Route: 037
     Dates: start: 1997

REACTIONS (11)
  - Walking aid user [Unknown]
  - Spinal laminectomy [Unknown]
  - Urinary retention [Recovered/Resolved]
  - Spinal cord compression [Unknown]
  - Condition aggravated [Recovered/Resolved]
  - Radiculopathy [Recovered/Resolved]
  - Asthenia [Recovered/Resolved]
  - Constipation [Recovered/Resolved]
  - Anaesthesia [Recovered/Resolved]
  - Granuloma [Recovered/Resolved]
  - Spinal cord oedema [Recovered/Resolved]
